FAERS Safety Report 6427924-8 (Version None)
Quarter: 2009Q4

REPORT INFORMATION
  Report Type: 
  Country: None (occurrence: None)
  Receive Date: 20091105
  Receipt Date: 20091029
  Transmission Date: 20100525
  Serious: Yes (Life-Threatening, Hospitalization)
  Sender: FDA-Public Use
  Company Number: JP-ROCHE-647918

PATIENT
  Sex: Male

DRUGS (6)
  1. RIBAVIRIN [Suspect]
     Route: 048
     Dates: start: 20080714, end: 20081221
  2. RIBAVIRIN [Suspect]
     Route: 048
     Dates: start: 20081222, end: 20081228
  3. RIBAVIRIN [Suspect]
     Route: 048
     Dates: start: 20081229, end: 20090126
  4. PEG-INTERFERON ALFA 2A (RO 25-8310) [Suspect]
     Route: 058
     Dates: start: 20080714, end: 20090126
  5. ATELEC [Concomitant]
     Route: 048
     Dates: start: 20080314, end: 20090126
  6. URSO 250 [Concomitant]
     Dosage: DOSE FORM: ORAL FORMULATION (NOT OTHERWISE SPECIFIED).
     Route: 048
     Dates: start: 20080326, end: 20090126

REACTIONS (2)
  - GASTROOESOPHAGEAL CANCER [None]
  - HAEMOGLOBIN DECREASED [None]
